FAERS Safety Report 7883359-2 (Version None)
Quarter: 2011Q4

REPORT INFORMATION
  Report Type: 
  Country: None (occurrence: None)
  Receive Date: 20111102
  Receipt Date: 20111102
  Transmission Date: 20120403
  Serious: No
  Sender: FDA-Public Use
  Company Number: None

PATIENT
  Age: 38 Year
  Sex: Female

DRUGS (2)
  1. RITUXAN [Suspect]
     Indication: DIFFUSE LARGE B-CELL LYMPHOMA
     Dosage: NOT PROVIDED
  2. RITUXAN [Suspect]
     Indication: NON-HODGKIN'S LYMPHOMA
     Dosage: NOT PROVIDED

REACTIONS (3)
  - INFUSION RELATED REACTION [None]
  - INCORRECT DRUG ADMINISTRATION RATE [None]
  - BLOOD PRESSURE DECREASED [None]
